FAERS Safety Report 21824206 (Version 2)
Quarter: 2023Q2

REPORT INFORMATION
  Report Type: Report from Study
  Country: US (occurrence: US)
  Receive Date: 20230105
  Receipt Date: 20230413
  Transmission Date: 20230722
  Serious: No
  Sender: FDA-Public Use
  Company Number: US-ABBVIE-4213272

PATIENT
  Age: 65 Year
  Sex: Male

DRUGS (2)
  1. SKYRIZI [Suspect]
     Active Substance: RISANKIZUMAB-RZAA
     Indication: Psoriasis
     Dosage: WEEK 0
     Route: 058
     Dates: start: 20221018, end: 20221018
  2. SKYRIZI [Suspect]
     Active Substance: RISANKIZUMAB-RZAA
     Dosage: WEEK 4 THEN EVERY 12 WEEKS
     Route: 058
     Dates: start: 202211

REACTIONS (10)
  - Pain of skin [Unknown]
  - Pain of skin [Unknown]
  - Skin discolouration [Unknown]
  - Pruritus [Unknown]
  - Skin disorder [Unknown]
  - Erythema [Unknown]
  - Nausea [Unknown]
  - Skin burning sensation [Unknown]
  - Pruritus [Unknown]
  - Erythema [Unknown]

NARRATIVE: CASE EVENT DATE: 20221122
